FAERS Safety Report 16012423 (Version 1)
Quarter: 2019Q1

REPORT INFORMATION
  Report Type: Spontaneous
  Country: ES (occurrence: ES)
  Receive Date: 20190227
  Receipt Date: 20190227
  Transmission Date: 20190418
  Serious: Yes (Other)
  Sender: FDA-Public Use
  Company Number: ES-ABBVIE-19K-144-2683645-00

PATIENT
  Age: 51 Year
  Sex: Female
  Weight: 85 kg

DRUGS (5)
  1. YANIMO [Concomitant]
     Indication: PRODUCT USED FOR UNKNOWN INDICATION
     Dosage: 2 INHALACINES/DIA
     Dates: start: 201804
  2. MAVIRET [Suspect]
     Active Substance: GLECAPREVIR\PIBRENTASVIR
     Indication: HEPATITIS C
     Dosage: 3 COMPRIMIDOS/DIA
     Route: 048
     Dates: start: 20181203, end: 20181209
  3. NIFEDIPINO [Concomitant]
     Active Substance: NIFEDIPINE
     Indication: PRODUCT USED FOR UNKNOWN INDICATION
  4. LISINOPRIL. [Concomitant]
     Active Substance: LISINOPRIL
     Indication: PRODUCT USED FOR UNKNOWN INDICATION
  5. PULMICORT TURBUHALER [Concomitant]
     Active Substance: BUDESONIDE
     Indication: PRODUCT USED FOR UNKNOWN INDICATION
     Dosage: I INHALACION /DIA?TURBUHALER 400 MICROGRAMOS/INHALACI?N POLVO PARA INHALACION
     Dates: start: 201804

REACTIONS (3)
  - Rash [Unknown]
  - Jaundice [Unknown]
  - Pruritus [Unknown]

NARRATIVE: CASE EVENT DATE: 20181204
